FAERS Safety Report 5588095-3 (Version None)
Quarter: 2008Q1

REPORT INFORMATION
  Report Type: 
  Country: None (occurrence: None)
  Receive Date: 20080111
  Receipt Date: 20071230
  Transmission Date: 20080703
  Serious: Yes (Other)
  Sender: FDA-Public Use
  Company Number: US-JNJFOC-20080101162

PATIENT

DRUGS (1)
  1. TYLENOL (CAPLET) [Suspect]
     Indication: NASOPHARYNGITIS
     Dosage: AMOUNT UNKNOWN

REACTIONS (1)
  - MEDICATION TAMPERING [None]
